FAERS Safety Report 13134608 (Version 3)
Quarter: 2017Q1

REPORT INFORMATION
  Report Type: Report from Study
  Country: FR (occurrence: FR)
  Receive Date: 20170120
  Receipt Date: 20170214
  Transmission Date: 20170428
  Serious: Yes (Death, Hospitalization, Other)
  Sender: FDA-Public Use
  Company Number: FR-ACTELION-A-CH2016-139098

PATIENT
  Age: 70 Year
  Sex: Female
  Weight: 59 kg

DRUGS (11)
  1. BISOPROLOL [Suspect]
     Active Substance: BISOPROLOL
     Indication: MYOCARDIAL ISCHAEMIA
     Dosage: 2.5 MG, OD
     Route: 048
     Dates: end: 20160705
  2. ATORVASTATINE [Suspect]
     Active Substance: ATORVASTATIN
     Indication: PRODUCT USED FOR UNKNOWN INDICATION
     Dosage: 40 MG, OD
     Route: 048
  3. RAMIPRIL. [Suspect]
     Active Substance: RAMIPRIL
     Indication: MYOCARDIAL ISCHAEMIA
     Dosage: 1.25 MG, OD
     Route: 048
     Dates: end: 20160705
  4. DUOPLAVIN [Suspect]
     Active Substance: ASPIRIN\CLOPIDOGREL
     Indication: MYOCARDIAL ISCHAEMIA
     Dosage: 75 MG, UNK
     Route: 048
     Dates: end: 20160704
  5. PARACETAMOL [Suspect]
     Active Substance: ACETAMINOPHEN
     Indication: PRODUCT USED FOR UNKNOWN INDICATION
     Dosage: UNK, PRN
     Route: 048
  6. REVATIO [Suspect]
     Active Substance: SILDENAFIL CITRATE
     Indication: PULMONARY ARTERIAL HYPERTENSION
     Dosage: 20 MG, TID
     Route: 048
     Dates: start: 20150702, end: 20160705
  7. UPTRAVI [Suspect]
     Active Substance: SELEXIPAG
     Dosage: 200 ?G, BID
     Route: 048
     Dates: start: 20160622
  8. TRACLEER [Suspect]
     Active Substance: BOSENTAN
     Indication: PULMONARY ARTERIAL HYPERTENSION
     Dosage: 125 MG, UNK
     Route: 048
     Dates: start: 20150702, end: 20160705
  9. INEXIUM [Suspect]
     Active Substance: ESOMEPRAZOLE
     Indication: PRODUCT USED FOR UNKNOWN INDICATION
     Dosage: 20 MG, OD
     Route: 048
     Dates: end: 20160704
  10. FUROSEMIDE. [Suspect]
     Active Substance: FUROSEMIDE
     Indication: MYOCARDIAL ISCHAEMIA
     Dosage: 40 MG, OD
     Route: 048
     Dates: end: 20160701
  11. UPTRAVI [Suspect]
     Active Substance: SELEXIPAG
     Indication: PULMONARY ARTERIAL HYPERTENSION
     Dosage: 400 ?G, BID
     Route: 048
     Dates: start: 20160629, end: 20160704

REACTIONS (32)
  - Tachypnoea [Fatal]
  - Anaphylactic shock [Unknown]
  - Haematemesis [Unknown]
  - Medication error [Unknown]
  - Nausea [Fatal]
  - Pulseless electrical activity [Fatal]
  - Urticaria [Unknown]
  - Varices oesophageal [Unknown]
  - Myocardial ischaemia [Fatal]
  - Troponin increased [Fatal]
  - Abdominal pain upper [Unknown]
  - Bundle branch block right [Not Recovered/Not Resolved]
  - Creatinine renal clearance decreased [Not Recovered/Not Resolved]
  - Tachycardia [Fatal]
  - Hypotension [Fatal]
  - Drug ineffective [Unknown]
  - Blood gases abnormal [Fatal]
  - Cough [Unknown]
  - Acute myocardial infarction [Fatal]
  - Coronary arterial stent insertion [Unknown]
  - Bradycardia [Fatal]
  - Chest pain [Fatal]
  - Electrocardiogram ST segment elevation [Fatal]
  - Renal failure [Not Recovered/Not Resolved]
  - Acute coronary syndrome [Fatal]
  - Dyspnoea [Fatal]
  - Cardio-respiratory arrest [Fatal]
  - N-terminal prohormone brain natriuretic peptide increased [Fatal]
  - Haemodynamic instability [Fatal]
  - Cardiac failure [Unknown]
  - Oedema peripheral [Unknown]
  - Diarrhoea [Unknown]

NARRATIVE: CASE EVENT DATE: 20160701
